FAERS Safety Report 6462475-6 (Version None)
Quarter: 2009Q4

REPORT INFORMATION
  Report Type: 
  Country: None (occurrence: None)
  Receive Date: 20091130
  Receipt Date: 20091118
  Transmission Date: 20100525
  Serious: Yes (Hospitalization, Other)
  Sender: FDA-Public Use
  Company Number: US-ELI_LILLY_AND_COMPANY-US200910006924

PATIENT
  Sex: Female
  Weight: 53.515 kg

DRUGS (1)
  1. FORTEO [Suspect]
     Indication: OSTEOPOROSIS
     Dosage: 20 UG, DAILY (1/D)
     Dates: start: 20090301

REACTIONS (5)
  - DIARRHOEA [None]
  - SMALL CELL LUNG CANCER METASTATIC [None]
  - SWELLING FACE [None]
  - THROMBOSIS [None]
  - VOMITING [None]
